FAERS Safety Report 21227074 (Version 1)
Quarter: 2022Q3

REPORT INFORMATION
  Report Type: Spontaneous
  Country: ES (occurrence: ES)
  Receive Date: 20220818
  Receipt Date: 20220818
  Transmission Date: 20221027
  Serious: Yes (Death, Hospitalization, Other)
  Sender: FDA-Public Use
  Company Number: ES-AMGEN-ESPSP2022139281

PATIENT

DRUGS (1)
  1. BEVACIZUMAB [Suspect]
     Active Substance: BEVACIZUMAB
     Indication: Colorectal cancer metastatic
     Route: 065

REACTIONS (8)
  - Death [Fatal]
  - Drug-induced liver injury [Unknown]
  - Steatohepatitis [Unknown]
  - Hepatic failure [Unknown]
  - Venoocclusive liver disease [Unknown]
  - Nodular regenerative hyperplasia [Unknown]
  - Phlebosclerosis [Unknown]
  - Post procedural bile leak [Unknown]
